FAERS Safety Report 12269304 (Version 1)
Quarter: 2016Q2

REPORT INFORMATION
  Report Type: Report from Study
  Country: AU (occurrence: AU)
  Receive Date: 20160414
  Receipt Date: 20160414
  Transmission Date: 20160815
  Serious: Yes (Other)
  Sender: FDA-Public Use
  Company Number: AU-BIOGEN-2015BI105905

PATIENT
  Age: 68 Year
  Sex: Female

DRUGS (1)
  1. PLEGRIDY [Suspect]
     Active Substance: PEGINTERFERON BETA-1A
     Indication: MULTIPLE SCLEROSIS
     Route: 058
     Dates: start: 20150507

REACTIONS (6)
  - Skin cancer [Unknown]
  - Fall [Recovered/Resolved]
  - Injection site pain [Not Recovered/Not Resolved]
  - Tendonitis [Unknown]
  - Contusion [Recovered/Resolved]
  - Injection site erythema [Not Recovered/Not Resolved]

NARRATIVE: CASE EVENT DATE: 2015
